FAERS Safety Report 7572046-6 (Version None)
Quarter: 2011Q2

REPORT INFORMATION
  Report Type: 
  Country: None (occurrence: None)
  Receive Date: 20110624
  Receipt Date: 20110613
  Transmission Date: 20111010
  Serious: Yes (Other)
  Sender: FDA-Public Use
  Company Number: US-UCBSA-035176

PATIENT
  Sex: Female

DRUGS (2)
  1. BUTRANS [Suspect]
     Dosage: PATCH
  2. LORTAB [Suspect]

REACTIONS (1)
  - WITHDRAWAL SYNDROME [None]
